FAERS Safety Report 8230628-2 (Version None)
Quarter: 2012Q1

REPORT INFORMATION
  Report Type: 
  Country: None (occurrence: None)
  Receive Date: 20120323
  Receipt Date: 20120319
  Transmission Date: 20120608
  Serious: Yes (Death)
  Sender: FDA-Public Use
  Company Number: TR-JNJFOC-20120300469

PATIENT
  Age: 6 Decade
  Sex: Female

DRUGS (3)
  1. AMISULPRIDE [Suspect]
     Indication: PRODUCT USED FOR UNKNOWN INDICATION
     Route: 065
  2. INVEGA [Suspect]
     Indication: SCHIZOPHRENIA
     Route: 048
     Dates: end: 20120228
  3. VALPROATE SODIUM [Suspect]
     Indication: PRODUCT USED FOR UNKNOWN INDICATION
     Route: 065

REACTIONS (2)
  - PARKINSONISM [None]
  - EXTRAPYRAMIDAL DISORDER [None]
